FAERS Safety Report 7185385-8 (Version None)
Quarter: 2010Q4

REPORT INFORMATION
  Report Type: 
  Country: None (occurrence: None)
  Receive Date: 20101222
  Receipt Date: 20100603
  Transmission Date: 20110411
  Serious: No
  Sender: FDA-Public Use
  Company Number: US-AMGEN-KDL416194

PATIENT

DRUGS (4)
  1. ENBREL [Suspect]
     Indication: PRODUCT USED FOR UNKNOWN INDICATION
     Dosage: 50 MG, QWK
  2. ASCORBIC ACID [Concomitant]
     Dosage: 500 MG, UNK
  3. TRIAMTERENE AND HYDROCHLOROTHIAZIDE [Concomitant]
     Dosage: UNK UNK, UNK
  4. CITRACAL PLUS D [Concomitant]
     Dosage: UNK UNK, UNK

REACTIONS (2)
  - FALL [None]
  - MUSCULAR WEAKNESS [None]
